APPROVED DRUG PRODUCT: SULFATRIM-DS
Active Ingredient: SULFAMETHOXAZOLE; TRIMETHOPRIM
Strength: 800MG;160MG
Dosage Form/Route: TABLET;ORAL
Application: A070066 | Product #001
Applicant: SUPERPHARM CORP
Approved: Jun 24, 1985 | RLD: No | RS: No | Type: DISCN